FAERS Safety Report 7617633-1 (Version None)
Quarter: 2011Q3

REPORT INFORMATION
  Report Type: 
  Country: None (occurrence: None)
  Receive Date: 20110718
  Receipt Date: 20110706
  Transmission Date: 20111222
  Serious: Yes (Hospitalization)
  Sender: FDA-Public Use
  Company Number: US-JNJFOC-20110702566

PATIENT
  Sex: Female
  Weight: 78.93 kg

DRUGS (4)
  1. REMICADE [Suspect]
     Route: 042
     Dates: start: 20040101, end: 20060101
  2. REMICADE [Suspect]
     Indication: SARCOIDOSIS
     Route: 042
     Dates: start: 20040101, end: 20060101
  3. REMICADE [Suspect]
     Indication: COLITIS ULCERATIVE
     Route: 042
     Dates: start: 20100101
  4. REMICADE [Suspect]
     Route: 042
     Dates: start: 20100101

REACTIONS (3)
  - COLECTOMY [None]
  - INJECTION SITE WARMTH [None]
  - INCORRECT DRUG ADMINISTRATION RATE [None]
